FAERS Safety Report 5190755-3 (Version None)
Quarter: 2006Q4

REPORT INFORMATION
  Report Type: 
  Country: None (occurrence: None)
  Receive Date: 20061215
  Receipt Date: 20061130
  Transmission Date: 20070319
  Serious: Yes (Death)
  Sender: FDA-Public Use
  Company Number: ZONI-D-04-001-0043

PATIENT
  Age: 30 Year
  Sex: Male
  Weight: 108 kg

DRUGS (6)
  1. ZONEGRAN [Suspect]
     Indication: EPILEPSY
     Dosage: 50 MG, 1 IN 1 D, ORAL
     Route: 048
     Dates: start: 20051107, end: 20051113
  2. ZONEGRAN [Suspect]
     Indication: GRAND MAL CONVULSION
     Dosage: 50 MG, 1 IN 1 D, ORAL
     Route: 048
     Dates: start: 20051107, end: 20051113
  3. ZONEGRAN [Concomitant]
  4. LYRICA [Concomitant]
  5. LAMOTRIGIN DESTIN (LAMOTRIGIN) [Concomitant]
  6. CITALOPRAM HYDROBROMIDE [Concomitant]

REACTIONS (2)
  - OVERWEIGHT [None]
  - SLEEP APNOEA SYNDROME [None]
